FAERS Safety Report 6511740-2 (Version None)
Quarter: 2009Q4

REPORT INFORMATION
  Report Type: 
  Country: None (occurrence: None)
  Receive Date: 20091222
  Receipt Date: 20090401
  Transmission Date: 20100525
  Serious: No
  Sender: FDA-Public Use
  Company Number: US-ASTRAZENECA-2009UW08229

PATIENT
  Age: 74 Year
  Sex: Female
  Weight: 70.3 kg

DRUGS (5)
  1. CRESTOR [Suspect]
     Route: 048
     Dates: start: 20060101
  2. HYDROXYUREA [Suspect]
     Indication: THROMBOCYTOPENIA
     Route: 065
     Dates: start: 20090201
  3. M.V.I. [Concomitant]
  4. BABY ASPIRIN [Concomitant]
  5. CALCIUM [Concomitant]

REACTIONS (4)
  - CHILLS [None]
  - FLUSHING [None]
  - NECK PAIN [None]
  - PYREXIA [None]
